FAERS Safety Report 10422483 (Version 1)
Quarter: 2014Q3

REPORT INFORMATION
  Report Type: Spontaneous
  Country: US (occurrence: US)
  Receive Date: 20140901
  Receipt Date: 20140901
  Transmission Date: 20150326
  Serious: Yes (Hospitalization)
  Sender: FDA-Public Use
  Company Number: US-ASTRAZENECA-2014SE64925

PATIENT
  Age: 21 Year
  Sex: Female
  Weight: 24 kg

DRUGS (8)
  1. NEXIUM 24HR [Suspect]
     Active Substance: ESOMEPRAZOLE MAGNESIUM
     Indication: GASTROOESOPHAGEAL REFLUX DISEASE
     Route: 048
     Dates: end: 2013
  2. LORAZEPAM. [Concomitant]
     Active Substance: LORAZEPAM
  3. DEPAKOTE [Suspect]
     Active Substance: DIVALPROEX SODIUM
     Indication: CONVULSION
     Route: 065
     Dates: start: 2007
  4. HALOPERIDOL. [Concomitant]
     Active Substance: HALOPERIDOL
  5. POTASSIUM [Concomitant]
     Active Substance: POTASSIUM
  6. PROTONIX [Concomitant]
     Active Substance: PANTOPRAZOLE SODIUM
  7. LEVETIRACETAM. [Concomitant]
     Active Substance: LEVETIRACETAM
  8. TOPIRAMATE. [Concomitant]
     Active Substance: TOPIRAMATE

REACTIONS (5)
  - Liver disorder [Unknown]
  - Regurgitation [Unknown]
  - Weight decreased [Recovered/Resolved]
  - Choking [Recovered/Resolved]
  - Drug ineffective [Unknown]
